FAERS Safety Report 10222243 (Version 4)
Quarter: 2014Q3

REPORT INFORMATION
  Report Type: Spontaneous
  Country: US (occurrence: US)
  Receive Date: 20140606
  Receipt Date: 20140718
  Transmission Date: 20150326
  Serious: Yes (Other)
  Sender: FDA-Public Use
  Company Number: US-PFIZER INC-2014155605

PATIENT
  Age: 59 Year
  Sex: Female
  Weight: 90.7 kg

DRUGS (3)
  1. LYRICA [Suspect]
     Active Substance: PREGABALIN
     Indication: NEURALGIA
     Dosage: UNK, 2X/DAY
     Route: 048
  2. LYRICA [Suspect]
     Active Substance: PREGABALIN
     Indication: PARAESTHESIA
  3. LYRICA [Suspect]
     Active Substance: PREGABALIN
     Indication: HYPOAESTHESIA
     Dosage: UNK, DAILY (REDUCED DOSE, TAKING ONE CAPSULE INSTEAD OF TWO)
     Route: 048
     Dates: start: 2014

REACTIONS (13)
  - Bone marrow tumour cell infiltration [Recovered/Resolved]
  - Lymphoma [Recovered/Resolved]
  - Memory impairment [Unknown]
  - Drug ineffective [Unknown]
  - Pain in extremity [Unknown]
  - Insomnia [Unknown]
  - Fall [Unknown]
  - Malaise [Unknown]
  - Influenza [Unknown]
  - Gait disturbance [Unknown]
  - Drug hypersensitivity [Unknown]
  - Asthenia [Unknown]
  - Arthralgia [Unknown]

NARRATIVE: CASE EVENT DATE: 20140605
